FAERS Safety Report 16727272 (Version 6)
Quarter: 2025Q1

REPORT INFORMATION
  Report Type: Spontaneous
  Country: CA (occurrence: CA)
  Receive Date: 20190822
  Receipt Date: 20250207
  Transmission Date: 20250409
  Serious: Yes (Life-Threatening, Hospitalization, Other)
  Sender: AUROBINDO
  Company Number: CA-AUROBINDO-AUR-APL-2019-054120

PATIENT
  Age: 52 Year
  Sex: Male

DRUGS (30)
  1. CITALOPRAM [Interacting]
     Active Substance: CITALOPRAM
     Indication: Depression
     Route: 048
  2. CITALOPRAM [Interacting]
     Active Substance: CITALOPRAM
     Indication: Product used for unknown indication
  3. ESCITALOPRAM [Suspect]
     Active Substance: ESCITALOPRAM OXALATE
     Indication: Depression
     Route: 065
  4. ESCITALOPRAM [Suspect]
     Active Substance: ESCITALOPRAM OXALATE
     Dosage: 10 MILLIGRAM, ONCE A DAY
     Route: 065
  5. ESCITALOPRAM [Suspect]
     Active Substance: ESCITALOPRAM OXALATE
     Route: 048
  6. CIPRALEX [Interacting]
     Active Substance: ESCITALOPRAM OXALATE
     Indication: Depression
     Dosage: 10 MILLIGRAM, ONCE A DAY
     Route: 065
  7. CIPRALEX [Interacting]
     Active Substance: ESCITALOPRAM OXALATE
     Dosage: 140 MILLIGRAM, ONCE A DAY
     Route: 048
  8. CIPRALEX [Interacting]
     Active Substance: ESCITALOPRAM OXALATE
     Route: 065
  9. DIAZEPAM [Interacting]
     Active Substance: DIAZEPAM
     Indication: Spinal stenosis
     Route: 048
  10. DIAZEPAM [Interacting]
     Active Substance: DIAZEPAM
     Route: 048
  11. DIAZEPAM [Interacting]
     Active Substance: DIAZEPAM
     Route: 065
  12. LORAZEPAM [Interacting]
     Active Substance: LORAZEPAM
     Indication: Insomnia
     Route: 048
  13. LORAZEPAM [Interacting]
     Active Substance: LORAZEPAM
     Route: 048
  14. MORPHINE [Interacting]
     Active Substance: MORPHINE
     Indication: Spinal stenosis
     Dosage: 30 MILLIGRAM, ONCE A DAY (1 EVERY 1 DAYS)
     Route: 048
  15. MORPHINE [Interacting]
     Active Substance: MORPHINE
     Indication: Product used for unknown indication
     Route: 065
  16. MORPHINE [Interacting]
     Active Substance: MORPHINE
     Indication: Depression
     Route: 065
  17. MORPHINE [Interacting]
     Active Substance: MORPHINE
     Route: 065
  18. MORPHINE [Interacting]
     Active Substance: MORPHINE
     Route: 065
  19. MORPHINE [Interacting]
     Active Substance: MORPHINE
     Route: 048
  20. MORPHINE [Interacting]
     Active Substance: MORPHINE
     Route: 065
  21. MORPHINE [Interacting]
     Active Substance: MORPHINE
     Dosage: 30 MILLIGRAM, ONCE A DAY
     Route: 048
  22. OXYCODONE [Interacting]
     Active Substance: OXYCODONE
     Indication: Spinal stenosis
     Route: 065
  23. OXYCODONE [Interacting]
     Active Substance: OXYCODONE
     Route: 048
  24. OXYCODONE [Interacting]
     Active Substance: OXYCODONE
     Route: 048
  25. OXYCODONE [Interacting]
     Active Substance: OXYCODONE
     Route: 065
  26. OXYCODONE AND ACETAMINOPHEN [Interacting]
     Active Substance: ACETAMINOPHEN\OXYCODONE HYDROCHLORIDE
     Indication: Product used for unknown indication
     Route: 048
  27. ZOPICLONE [Interacting]
     Active Substance: ZOPICLONE
     Indication: Insomnia
     Route: 065
  28. ZOPICLONE [Interacting]
     Active Substance: ZOPICLONE
     Route: 048
  29. ZOPICLONE [Interacting]
     Active Substance: ZOPICLONE
     Dosage: 15 MILLIGRAM, ONCE A DAY (1 EVERY 1 DAYS)
     Route: 048
  30. ALTACE [Interacting]
     Active Substance: RAMIPRIL
     Indication: Product used for unknown indication
     Route: 065

REACTIONS (22)
  - Blood creatine phosphokinase increased [Recovered/Resolved]
  - Blood creatine increased [Recovered/Resolved]
  - Blood potassium increased [Recovered/Resolved]
  - Blood pressure decreased [Recovered/Resolved]
  - Bradycardia [Recovered/Resolved]
  - Coma [Recovered/Resolved]
  - Coma scale abnormal [Recovered/Resolved]
  - Drug screen positive [Recovering/Resolving]
  - Electrocardiogram QT prolonged [Recovered/Resolved]
  - Electrocardiogram abnormal [Recovered/Resolved]
  - Heart rate decreased [Recovered/Resolved]
  - Hyperkalaemia [Recovered/Resolved]
  - Hypotension [Recovered/Resolved]
  - Loss of consciousness [Recovered/Resolved]
  - Mechanical ventilation [Recovered/Resolved]
  - Opiates positive [Recovered/Resolved]
  - Oxygen saturation decreased [Recovered/Resolved]
  - Sinus tachycardia [Recovered/Resolved]
  - Suicide attempt [Recovered/Resolved]
  - Drug interaction [Recovered/Resolved]
  - Intentional overdose [Recovered/Resolved]
  - Overdose [Recovered/Resolved]
